FAERS Safety Report 8096206-3 (Version None)
Quarter: 2012Q1

REPORT INFORMATION
  Report Type: 
  Country: None (occurrence: None)
  Receive Date: 20120129
  Receipt Date: 20111208
  Transmission Date: 20120608
  Serious: No
  Sender: FDA-Public Use
  Company Number: US-ABBOTT-11P-163-0882310-00

PATIENT
  Age: 74 Year
  Sex: Female

DRUGS (12)
  1. ASACOL [Concomitant]
     Indication: CROHN'S DISEASE
     Dosage: 90 MG DAILY
     Route: 048
  2. LUTEIN [Concomitant]
     Indication: MACULAR DEGENERATION
     Dosage: 20 MG DAILY
     Route: 048
  3. IRON SUPPLEMENT [Concomitant]
     Indication: ANAEMIA
     Route: 048
  4. CARDIZEM [Concomitant]
     Indication: HYPERTENSION
     Route: 048
  5. ASPIRIN [Concomitant]
     Indication: PRODUCT USED FOR UNKNOWN INDICATION
     Dosage: LOW DOSE / DAILY
     Route: 048
  6. PREVACID [Concomitant]
     Indication: GASTROOESOPHAGEAL REFLUX DISEASE
     Route: 048
  7. HUMIRA [Suspect]
     Indication: CROHN'S DISEASE
     Dosage: LOADING DOSE/160 MG X 1 DOSE
     Dates: start: 20111120, end: 20111120
  8. LISINOPRIL [Concomitant]
     Indication: HYPERTENSION
     Dosage: 20 MG DAILY
  9. MULTI-VITAMIN [Concomitant]
     Indication: PRODUCT USED FOR UNKNOWN INDICATION
     Dosage: DAILY
     Route: 048
  10. VITAMIN B COMPLEX CAP [Concomitant]
     Indication: PRODUCT USED FOR UNKNOWN INDICATION
     Dosage: DAILY
  11. JANUMET [Concomitant]
     Indication: DIABETES MELLITUS
     Dosage: 1 IN MORNING AND 1 IN EVENING
     Route: 058
  12. ACTOS [Concomitant]
     Indication: DIABETES MELLITUS
     Route: 048

REACTIONS (1)
  - INJECTION SITE PAIN [None]
